FAERS Safety Report 5254402-4 (Version None)
Quarter: 2007Q1

REPORT INFORMATION
  Report Type: 
  Country: None (occurrence: None)
  Receive Date: 20070302
  Receipt Date: 20070223
  Transmission Date: 20070707
  Serious: Yes (Death)
  Sender: FDA-Public Use
  Company Number: US-ROCHE-484128

PATIENT
  Sex: Female

DRUGS (1)
  1. FUZEON [Suspect]
     Route: 065

REACTIONS (1)
  - PNEUMOCYSTIS JIROVECI PNEUMONIA [None]
